FAERS Safety Report 8897710 (Version 1)
Quarter: 2012Q4

REPORT INFORMATION
  Report Type: 
  Country: US (occurrence: US)
  Receive Date: 20121108
  Receipt Date: 20121108
  Transmission Date: 20130627
  Serious: Yes (Hospitalization)
  Sender: FDA-Public Use
  Company Number: US-AMGEN-USASP2012035624

PATIENT
  Age: 67 Year
  Sex: Female
  Weight: 48.07 kg

DRUGS (1)
  1. ENBREL [Suspect]
     Indication: PSORIASIS
     Dosage: 50 mg, 2 times/wk
     Route: 058
     Dates: start: 20100101

REACTIONS (2)
  - Gastrointestinal infection [Recovered/Resolved]
  - Contusion [Unknown]
